FAERS Safety Report 9944294 (Version 1)
Quarter: 2014Q1

REPORT INFORMATION
  Report Type: Report from Study
  Country: US (occurrence: US)
  Receive Date: 20140303
  Receipt Date: 20140303
  Transmission Date: 20141002
  Serious: Yes (Hospitalization, Other)
  Sender: FDA-Public Use
  Company Number: US-ABBVIE-13P-163-1053222-00

PATIENT
  Sex: Female

DRUGS (7)
  1. HUMIRA [Suspect]
     Indication: PSORIATIC ARTHROPATHY
     Dates: start: 20120909
  2. METFORMIN [Concomitant]
     Indication: DIABETES MELLITUS
  3. TRICOR [Concomitant]
     Indication: BLOOD CHOLESTEROL INCREASED
  4. REQUIP [Concomitant]
     Indication: RESTLESS LEGS SYNDROME
  5. NORCO [Concomitant]
     Indication: BACK PAIN
     Dosage: 10MG/325MG PRN
  6. VITOZA [Concomitant]
     Indication: DIABETES MELLITUS
  7. VITOZA [Concomitant]

REACTIONS (9)
  - Nephrolithiasis [Recovering/Resolving]
  - Pain [Unknown]
  - Blood glucose increased [Unknown]
  - Injection site pain [Unknown]
  - Injection site bruising [Unknown]
  - Injection site haemorrhage [Unknown]
  - Injection site urticaria [Unknown]
  - Injection site bruising [Unknown]
  - Contusion [Unknown]
